FAERS Safety Report 6436804-3 (Version None)
Quarter: 2009Q4

REPORT INFORMATION
  Report Type: 
  Country: None (occurrence: None)
  Receive Date: 20091109
  Receipt Date: 20091102
  Transmission Date: 20100525
  Serious: Yes (Death, Hospitalization)
  Sender: FDA-Public Use
  Company Number: 2009SP033957

PATIENT
  Age: 72 Year
  Sex: Male
  Weight: 73.92 kg

DRUGS (5)
  1. TEMOZOLOMIDE [Suspect]
     Indication: COLORECTAL CANCER
     Dosage: 360 MG; ;PO
     Route: 048
     Dates: start: 20090924, end: 20090928
  2. TASISULAM SODIUM [Suspect]
     Indication: COLORECTAL CANCER
     Dosage: 2091 MG; ;IV
     Route: 042
     Dates: start: 20090924, end: 20090924
  3. GLYBURIDE [Concomitant]
  4. LISINOPRIL [Concomitant]
  5. PALONOSETRON [Concomitant]

REACTIONS (5)
  - CHILLS [None]
  - NEUTROPENIA [None]
  - PYREXIA [None]
  - SEPSIS [None]
  - THROMBOCYTOPENIA [None]
